FAERS Safety Report 16028942 (Version 1)
Quarter: 2019Q1

REPORT INFORMATION
  Report Type: Spontaneous
  Country: US (occurrence: US)
  Receive Date: 20190205
  Receipt Date: 20190205
  Transmission Date: 20190418
  Serious: No
  Sender: FDA-Public Use
  Company Number: None

PATIENT
  Sex: Male

DRUGS (2)
  1. CYCLOBENZAPRINE HCL [Suspect]
     Active Substance: CYCLOBENZAPRINE HYDROCHLORIDE
  2. AZILECT [Suspect]
     Active Substance: RASAGILINE MESYLATE

REACTIONS (3)
  - Labelled drug-drug interaction medication error [None]
  - Contraindicated product prescribed [None]
  - Serotonin syndrome [None]

NARRATIVE: CASE EVENT DATE: 2018
